FAERS Safety Report 10332226 (Version 1)
Quarter: 2014Q3

REPORT INFORMATION
  Report Type: Spontaneous
  Country: US (occurrence: None)
  Receive Date: 20140721
  Receipt Date: 20140721
  Transmission Date: 20150326
  Serious: No
  Sender: FDA-Public Use
  Company Number: None

PATIENT
  Age: 58 Year
  Sex: Female
  Weight: 64.41 kg

DRUGS (2)
  1. REFISSA [Suspect]
     Active Substance: TRETINOIN
     Indication: SKIN DISCOLOURATION
     Dosage: PEA SIZE, TWICE/WK FACE
     Dates: start: 20140515, end: 20140712
  2. REFISSA [Suspect]
     Active Substance: TRETINOIN
     Indication: SKIN WRINKLING
     Dosage: PEA SIZE, TWICE/WK FACE
     Dates: start: 20140515, end: 20140712

REACTIONS (5)
  - Eye swelling [None]
  - Rash generalised [None]
  - Burning sensation [None]
  - Rash pruritic [None]
  - Erythema [None]

NARRATIVE: CASE EVENT DATE: 20140717
